FAERS Safety Report 20077845 (Version 1)
Quarter: 2021Q4

REPORT INFORMATION
  Report Type: Spontaneous
  Country: DE (occurrence: DE)
  Receive Date: 20211116
  Receipt Date: 20211116
  Transmission Date: 20220303
  Serious: Yes (Hospitalization)
  Sender: FDA-Public Use
  Company Number: DE-ADRED-07217-01

PATIENT
  Age: 63 Year
  Sex: Male
  Weight: 61 kg

DRUGS (7)
  1. SPIRONOLACTONE [Suspect]
     Active Substance: SPIRONOLACTONE
     Indication: Product used for unknown indication
     Dosage: 50 MG, 2-0-0-0
  2. FUROSEMIDE [Suspect]
     Active Substance: FUROSEMIDE
     Indication: Product used for unknown indication
     Dosage: 40 MG, 2-0-0-0
  3. PANTOPRAZOLE [Suspect]
     Active Substance: PANTOPRAZOLE
     Indication: Product used for unknown indication
     Dosage: 40 MG, 1-0-0-0
  4. ORNITHINE ASPARTATE [Concomitant]
     Active Substance: ORNITHINE ASPARTATE
     Dosage: 3 MILLIGRAM,1-0-1-0
  5. KALIUM                             /00031401/ [Concomitant]
     Dosage: 200 MILLIGRAM, 1-0-1-0
  6. LACTULOSE [Concomitant]
     Active Substance: LACTULOSE
     Dosage: 3.335 G, 20-0-0-0
  7. SITAGLIPTIN [Concomitant]
     Active Substance: SITAGLIPTIN
     Dosage: 100 MG, 1-0-0-0

REACTIONS (9)
  - Hyponatraemia [Unknown]
  - Abdominal pain [Unknown]
  - Disorientation [Unknown]
  - Depressed mood [Unknown]
  - Anaemia [Unknown]
  - General physical health deterioration [Unknown]
  - Oedema peripheral [Unknown]
  - Confusional state [Unknown]
  - Condition aggravated [Unknown]
